FAERS Safety Report 6078678-9 (Version None)
Quarter: 2009Q1

REPORT INFORMATION
  Report Type: 
  Country: None (occurrence: None)
  Receive Date: 20090216
  Receipt Date: 20090204
  Transmission Date: 20090719
  Serious: Yes (Other)
  Sender: FDA-Public Use
  Company Number: PHBS2009DE00761

PATIENT
  Age: 45 Year
  Sex: Female

DRUGS (3)
  1. GLEEVEC [Suspect]
     Indication: DERMATOFIBROSARCOMA
     Dosage: 400 MG DAILY
  2. GLEEVEC [Suspect]
     Dosage: 600 MG/ DAY
  3. GLEEVEC [Suspect]
     Dosage: 800 MG DAILY

REACTIONS (7)
  - ANAEMIA [None]
  - DYSPNOEA [None]
  - GASTRITIS [None]
  - NAUSEA [None]
  - OEDEMA PERIPHERAL [None]
  - SURGERY [None]
  - TRANSAMINASES INCREASED [None]
